FAERS Safety Report 18490222 (Version 2)
Quarter: 2022Q2

REPORT INFORMATION
  Report Type: Spontaneous
  Country: NL (occurrence: NL)
  Receive Date: 20201111
  Receipt Date: 20220609
  Transmission Date: 20220721
  Serious: Yes (Life-Threatening, Hospitalization, Other)
  Sender: FDA-Public Use
  Company Number: None

PATIENT

DRUGS (2)
  1. LAMOTRIGINE [Suspect]
     Active Substance: LAMOTRIGINE
     Indication: Depersonalisation/derealisation disorder
     Dosage: 50 MG, QD
     Route: 065
     Dates: start: 20200801
  2. VENLAFAXINE [Concomitant]
     Active Substance: VENLAFAXINE HYDROCHLORIDE
     Indication: Depersonalisation/derealisation disorder
     Dosage: 75 MG, QD (MORE THAN 15 YEARS OF USE. RESTART ON DAY 2 OF ADMISSION)
     Route: 065
     Dates: end: 2020

REACTIONS (2)
  - Haemophagocytic lymphohistiocytosis [Unknown]
  - Megakaryocytes increased [Recovered/Resolved]

NARRATIVE: CASE EVENT DATE: 20200820
